FAERS Safety Report 7389493-8 (Version None)
Quarter: 2011Q1

REPORT INFORMATION
  Report Type: 
  Country: None (occurrence: None)
  Receive Date: 20110324
  Receipt Date: 20110316
  Transmission Date: 20110831
  Serious: Yes (Hospitalization)
  Sender: FDA-Public Use
  Company Number: UTC-005745

PATIENT
  Age: 69 Year
  Sex: Female

DRUGS (2)
  1. TYVASO [Suspect]
     Dosage: 72 MCG (18 MCG, 4 IN 1 D) , INHALATION
     Route: 055
  2. ADCIRCA [Concomitant]

REACTIONS (2)
  - HYPOTENSION [None]
  - CARDIAC FAILURE CONGESTIVE [None]
